FAERS Safety Report 15851590 (Version 1)
Quarter: 2019Q1

REPORT INFORMATION
  Report Type: Spontaneous
  Country: US (occurrence: US)
  Receive Date: 20190122
  Receipt Date: 20190122
  Transmission Date: 20190417
  Serious: Yes (Other)
  Sender: FDA-Public Use
  Company Number: US-TEVA-2019-US-999443

PATIENT
  Sex: Female
  Weight: 45 kg

DRUGS (2)
  1. ALBUTEROL SULFATE NEBULIZING SOLUTION [Suspect]
     Active Substance: ALBUTEROL SULFATE
     Route: 065
  2. PROAIR RESPICLICK [Suspect]
     Active Substance: ALBUTEROL SULFATE
     Indication: CHRONIC OBSTRUCTIVE PULMONARY DISEASE
     Route: 065

REACTIONS (3)
  - Prescription drug used without a prescription [Unknown]
  - Palpitations [Unknown]
  - Hypertension [Unknown]
